FAERS Safety Report 8725713 (Version 2)
Quarter: 2012Q4

REPORT INFORMATION
  Report Type: 
  Country: US (occurrence: US)
  Receive Date: 20120815
  Receipt Date: 20120925
  Transmission Date: 20130627
  Serious: Yes (Other)
  Sender: FDA-Public Use
  Company Number: US-BAYER-2012-082952

PATIENT
  Age: 26 Year
  Sex: Female

DRUGS (2)
  1. MIRENA [Suspect]
     Indication: MENORRHAGIA
     Dosage: 20 mcg/24hr, UNK
     Route: 015
     Dates: start: 20120723, end: 201208
  2. MIRENA [Suspect]
     Indication: CONTRACEPTION

REACTIONS (4)
  - Device dislocation [None]
  - Vulvovaginal pain [None]
  - Pelvic pain [Recovering/Resolving]
  - Malaise [None]
